FAERS Safety Report 23351153 (Version 1)
Quarter: 2023Q4

REPORT INFORMATION
  Report Type: Spontaneous
  Country: CN (occurrence: CN)
  Receive Date: 20231229
  Receipt Date: 20231229
  Transmission Date: 20240110
  Serious: Yes (Life-Threatening, Other)
  Sender: FDA-Public Use
  Company Number: CN-BAYER-2023A186449

PATIENT
  Age: 45 Year
  Sex: Female

DRUGS (1)
  1. ULTRAVIST [Suspect]
     Active Substance: IOPROMIDE
     Indication: Imaging procedure
     Dosage: 60 ML, ONCE
     Route: 042
     Dates: start: 20231204, end: 20231204

REACTIONS (7)
  - Blood pressure decreased [None]
  - Amaurosis [None]
  - Rash erythematous [Recovering/Resolving]
  - Peripheral swelling [None]
  - Eye swelling [None]
  - Skin tightness [None]
  - Heart rate increased [Recovered/Resolved]

NARRATIVE: CASE EVENT DATE: 20231204
